FAERS Safety Report 4727208-X (Version None)
Quarter: 2005Q3

REPORT INFORMATION
  Report Type: 
  Country: None (occurrence: None)
  Receive Date: 20050728
  Receipt Date: 20050718
  Transmission Date: 20060218
  Serious: Yes (Hospitalization)
  Sender: FDA-Public Use
  Company Number: FR-BOEHRINGER INGELHEIM PHARMACEUTICALS, INC.-2005-FF-00521FF

PATIENT
  Age: 22 Year
  Sex: Female
  Weight: 58 kg

DRUGS (6)
  1. PERSANTINE [Suspect]
     Route: 042
     Dates: start: 20050614, end: 20050622
  2. ASPEGIC 325 [Suspect]
     Route: 048
     Dates: start: 20050615, end: 20050623
  3. TORENTAL [Suspect]
     Route: 048
     Dates: start: 20050614, end: 20050622
  4. PERFALGAN [Suspect]
     Route: 042
     Dates: start: 20050614, end: 20050622
  5. PROFENID [Concomitant]
     Route: 042
     Dates: start: 20050615, end: 20050616
  6. KEFANDOL [Concomitant]
     Route: 042
     Dates: start: 20050615, end: 20050616

REACTIONS (2)
  - RENAL FAILURE ACUTE [None]
  - RENAL TUBULAR NECROSIS [None]
